FAERS Safety Report 8494516-9 (Version None)
Quarter: 2012Q2

REPORT INFORMATION
  Report Type: 
  Country: None (occurrence: None)
  Receive Date: 20120627
  Receipt Date: 20120612
  Transmission Date: 20120825
  Serious: Yes (Hospitalization)
  Sender: FDA-Public Use
  Company Number: 1320249

PATIENT

DRUGS (5)
  1. NEULASTA [Suspect]
     Indication: PROPHYLAXIS
     Dosage: 6 MG MILLIGRAM(S) SUBCUTANEOUS
     Route: 058
     Dates: start: 20110615
  2. CYCLOPHOSPHAMIDE [Suspect]
     Indication: DIFFUSE LARGE B-CELL LYMPHOMA
     Dosage: 7300 MG MILLIGRAM(S), INTRAVENOUS
     Route: 042
     Dates: start: 20110524, end: 20110609
  3. RITUXAN [Suspect]
     Indication: DIFFUSE LARGE B-CELL LYMPHOMA
     Dosage: 650 MG, MILLIGRMAM(S), INTRAVENOUS
     Route: 042
     Dates: start: 20110524, end: 20110609
  4. DOXORUBICIN HCL [Suspect]
     Indication: DIFFUSE LARGE B-CELL LYMPHOMA
     Dosage: 85 MG MILLIGRAM(S) SUBCUTANEOUS
     Route: 058
     Dates: start: 20110524, end: 20110609
  5. VINCRISTINE SULFATE [Suspect]
     Indication: DIFFUSE LARGE B-CELL LYMPHOMA
     Dosage: 2 MG MILLIGRAM(S), UNKNOWN INTRAVENOUS
     Route: 042
     Dates: start: 20110524, end: 20110609

REACTIONS (7)
  - NEUTROPENIC SEPSIS [None]
  - WHITE BLOOD CELL COUNT DECREASED [None]
  - RED BLOOD CELL COUNT DECREASED [None]
  - MONOCYTE COUNT DECREASED [None]
  - HAEMATOCRIT DECREASED [None]
  - DRUG INEFFECTIVE [None]
  - HAEMOGLOBIN DECREASED [None]
